FAERS Safety Report 23194604 (Version 3)
Quarter: 2023Q4

REPORT INFORMATION
  Report Type: Report from Study
  Country: CN (occurrence: CN)
  Receive Date: 20231117
  Receipt Date: 20231208
  Transmission Date: 20240109
  Serious: Yes (Life-Threatening)
  Sender: FDA-Public Use
  Company Number: CN-LaNova Medicines Development Co., Ltd.-2023-LDM-108-00183

PATIENT

DRUGS (19)
  1. TORIPALIMAB [Suspect]
     Active Substance: TORIPALIMAB
     Indication: Lung adenocarcinoma
     Dosage: 240 MG, EVERY 21 DAYS
     Route: 042
     Dates: start: 20230509, end: 20230509
  2. TORIPALIMAB [Suspect]
     Active Substance: TORIPALIMAB
     Indication: Lung adenocarcinoma
     Dosage: 240 MG, EVERY 21 DAYS
     Route: 041
     Dates: start: 20230530, end: 20230530
  3. TORIPALIMAB [Suspect]
     Active Substance: TORIPALIMAB
     Dosage: 240 MG, EVERY 21 DAYS
     Route: 041
     Dates: start: 20230620, end: 20230620
  4. TORIPALIMAB [Suspect]
     Active Substance: TORIPALIMAB
     Dosage: 240 MG, EVERY 21 DAYS
     Route: 041
     Dates: start: 20230713, end: 20230713
  5. TORIPALIMAB [Suspect]
     Active Substance: TORIPALIMAB
     Dosage: 240 MG, EVERY 21 DAYS
     Route: 041
     Dates: start: 20230803, end: 20230803
  6. INVESTIGATIONAL PRODUCT [Suspect]
     Active Substance: INVESTIGATIONAL PRODUCT
     Indication: Lung adenocarcinoma
     Dosage: 450 MG, EVERY 21 DAYS
     Route: 042
     Dates: start: 20230509, end: 20230509
  7. INVESTIGATIONAL PRODUCT [Suspect]
     Active Substance: INVESTIGATIONAL PRODUCT
     Dosage: 450 MG, EVERY 21 DAYS
     Route: 041
     Dates: start: 20230530, end: 20230530
  8. INVESTIGATIONAL PRODUCT [Suspect]
     Active Substance: INVESTIGATIONAL PRODUCT
     Dosage: 450 MG, EVERY 21 DAYS
     Route: 041
     Dates: start: 20230620, end: 20230620
  9. INVESTIGATIONAL PRODUCT [Suspect]
     Active Substance: INVESTIGATIONAL PRODUCT
     Dosage: 450 MG, EVERY 21 DAYS
     Route: 041
     Dates: start: 20230713, end: 20230713
  10. INVESTIGATIONAL PRODUCT [Suspect]
     Active Substance: INVESTIGATIONAL PRODUCT
     Dosage: 430 MG, EVERY 21 DAYS
     Route: 041
     Dates: start: 20230803, end: 20230803
  11. DEXTROMETHORPHAN HYDROBROMIDE [Concomitant]
     Active Substance: DEXTROMETHORPHAN HYDROBROMIDE
     Indication: Cough
     Dosage: 2 {DF}, BID
     Route: 048
     Dates: start: 20230808, end: 20230817
  12. MIGLITOL [Concomitant]
     Active Substance: MIGLITOL
     Indication: Diabetes mellitus
     Dosage: 50 MG, TID
     Route: 048
     Dates: start: 20230325, end: 20231028
  13. MIGLITOL [Concomitant]
     Active Substance: MIGLITOL
     Indication: Diabetes mellitus
  14. MORPHINE HYDROCHLORIDE [Concomitant]
     Active Substance: MORPHINE HYDROCHLORIDE
     Indication: Analgesic therapy
     Dosage: 10 MG, BID
     Route: 048
     Dates: start: 20230414, end: 20231028
  15. MORPHINE HYDROCHLORIDE [Concomitant]
     Active Substance: MORPHINE HYDROCHLORIDE
     Indication: Analgesic therapy
  16. DICLOFENAC SODIUM [Concomitant]
     Active Substance: DICLOFENAC\DICLOFENAC SODIUM
     Indication: Analgesic therapy
     Dosage: 1 {DF}, QN
     Route: 048
     Dates: start: 20230524, end: 20231028
  17. DICLOFENAC SODIUM [Concomitant]
     Active Substance: DICLOFENAC\DICLOFENAC SODIUM
     Indication: Analgesic therapy
  18. GLIQUIDONE [Concomitant]
     Active Substance: GLIQUIDONE
     Indication: Blood glucose increased
     Dosage: 30 MG, TID
     Route: 048
     Dates: start: 20230710, end: 20231028
  19. GLIQUIDONE [Concomitant]
     Active Substance: GLIQUIDONE

REACTIONS (1)
  - Immune-mediated enterocolitis [Not Recovered/Not Resolved]

NARRATIVE: CASE EVENT DATE: 20230815
